FAERS Safety Report 8985263 (Version 1)
Quarter: 2012Q4

REPORT INFORMATION
  Report Type: 
  Country: US (occurrence: US)
  Receive Date: 20121226
  Receipt Date: 20121226
  Transmission Date: 20130627
  Serious: No
  Sender: FDA-Public Use
  Company Number: US-BAYER-2012-134812

PATIENT
  Age: 75 Year
  Sex: Female
  Weight: 69.84 kg

DRUGS (2)
  1. ALEVE CAPLET/TABLET,MIDOL EXTENDED RELIEF CAPLET [Suspect]
     Indication: HEADACHE
     Dosage: 1 DF, BID
     Route: 048
     Dates: start: 201112, end: 201203
  2. ONE A DAY WOMEN^S 50+ HEALTHY ADVANTAGE [Concomitant]

REACTIONS (2)
  - Headache [Recovered/Resolved]
  - Drug ineffective [None]
